FAERS Safety Report 10721244 (Version 1)
Quarter: 2015Q1

REPORT INFORMATION
  Report Type: Spontaneous
  Country: US (occurrence: US)
  Receive Date: 20150119
  Receipt Date: 20150119
  Transmission Date: 20150721
  Serious: No
  Sender: FDA-Public Use
  Company Number: US-UNITED THERAPEUTICS-UNT-2014-011531

PATIENT
  Age: 68 Year
  Sex: Female
  Weight: 51.7 kg

DRUGS (1)
  1. TYVASO [Suspect]
     Active Substance: TREPROSTINIL
     Indication: PULMONARY ARTERIAL HYPERTENSION
     Dosage: 18-54 ?G, QID
     Dates: start: 20141021

REACTIONS (3)
  - Rash [Unknown]
  - Psoriasis [Unknown]
  - Cough [Unknown]

NARRATIVE: CASE EVENT DATE: 20141121
